FAERS Safety Report 9283943 (Version 3)
Quarter: 2013Q2

REPORT INFORMATION
  Report Type: Spontaneous
  Country: US (occurrence: None)
  Receive Date: 20130502
  Receipt Date: 20130621
  Transmission Date: 20140414
  Serious: Yes (Hospitalization)
  Sender: FDA-Public Use
  Company Number: ACO_35760_2013

PATIENT
  Age: 74 Year
  Sex: Female
  Weight: 115.2 kg

DRUGS (3)
  1. AMPYRA [Suspect]
     Indication: MUSCULAR WEAKNESS
     Dates: start: 201303, end: 201304
  2. AMPYRA [Suspect]
     Indication: MULTIPLE SCLEROSIS
     Dates: start: 201303, end: 201304
  3. METFORMIN ER (METFORMIN HYDROCHLORIDE) [Concomitant]

REACTIONS (4)
  - Cerebrovascular accident [None]
  - Transient ischaemic attack [None]
  - Aphasia [None]
  - Refusal of treatment by patient [None]
